FAERS Safety Report 19087016 (Version 1)
Quarter: 2021Q2

REPORT INFORMATION
  Report Type: Spontaneous
  Country: US (occurrence: US)
  Receive Date: 20210401
  Receipt Date: 20210401
  Transmission Date: 20210717
  Serious: Yes (Hospitalization)
  Sender: FDA-Public Use
  Company Number: None

PATIENT
  Age: 63 Year
  Sex: Male
  Weight: 174 kg

DRUGS (1)
  1. EMPAGLIFLOZIN (EMPAGLIFLOZIN 25MG TAB) [Suspect]
     Active Substance: EMPAGLIFLOZIN
     Indication: DIABETES MELLITUS
     Route: 048
     Dates: start: 20200915, end: 20201205

REACTIONS (8)
  - Diabetic ketoacidosis [None]
  - Dyspnoea [None]
  - Tachypnoea [None]
  - Diarrhoea [None]
  - COVID-19 [None]
  - Pyrexia [None]
  - Confusional state [None]
  - COVID-19 pneumonia [None]

NARRATIVE: CASE EVENT DATE: 20201205
